FAERS Safety Report 8135874-4 (Version None)
Quarter: 2012Q1

REPORT INFORMATION
  Report Type: 
  Country: None (occurrence: None)
  Receive Date: 20120214
  Receipt Date: 20120210
  Transmission Date: 20120608
  Serious: Yes (Other)
  Sender: FDA-Public Use
  Company Number: GB-GLAXOSMITHKLINE-B0779710A

PATIENT
  Age: 80 Year
  Sex: Male

DRUGS (8)
  1. WARFARIN SODIUM [Concomitant]
  2. RAMIPRIL [Suspect]
     Indication: HYPERTENSION
     Dosage: 1.25MG PER DAY
     Route: 048
  3. LAMOTRIGINE [Suspect]
     Indication: EPILEPSY
     Dosage: 25MG PER DAY
  4. TAMSULOSIN HCL [Concomitant]
  5. UNKNOWN [Concomitant]
  6. LEVOTHYROXINE SODIUM [Concomitant]
     Dosage: 25MCG PER DAY
     Dates: start: 20120125
  7. FINASTERIDE [Concomitant]
     Dosage: 5MG PER DAY
  8. LATANOPROST [Concomitant]
     Indication: GLAUCOMA

REACTIONS (3)
  - MYELODYSPLASTIC SYNDROME [None]
  - WHITE BLOOD CELL COUNT DECREASED [None]
  - HAEMOGLOBIN DECREASED [None]
